FAERS Safety Report 9571351 (Version 2)
Quarter: 2013Q4

REPORT INFORMATION
  Report Type: Spontaneous
  Country: TW (occurrence: TW)
  Receive Date: 20131001
  Receipt Date: 20131011
  Transmission Date: 20140711
  Serious: Yes (Other)
  Sender: FDA-Public Use
  Company Number: TW-RANBAXY-2013RR-73599

PATIENT
  Age: 68 Year
  Sex: Female

DRUGS (24)
  1. TRAMADOL [Suspect]
     Indication: NEURALGIA
     Dosage: 100 MG, TID
     Route: 065
  2. TRAMADOL [Suspect]
     Indication: NEURALGIA
     Dosage: UNK
     Route: 065
  3. FENTANYL [Suspect]
     Indication: NEURALGIA
     Dosage: 24 ?G/HOUR
     Route: 062
  4. TRAMADOL/PARACETAMOL [Suspect]
     Indication: NEURALGIA
     Dosage: 37.5/325MG QID
     Route: 065
  5. MORPHINE [Suspect]
     Indication: NEURALGIA
     Dosage: 10 MG, PRN, INJECTION
     Route: 065
  6. CLONAZEPAM [Concomitant]
     Indication: FEELING COLD
     Dosage: 0.5 MG, BID
     Route: 065
  7. CLONAZEPAM [Concomitant]
     Indication: TREMOR
  8. CLONAZEPAM [Concomitant]
     Indication: NIGHT SWEATS
  9. CLONAZEPAM [Concomitant]
     Indication: NEURALGIA
  10. CLONAZEPAM [Concomitant]
     Indication: INSOMNIA
  11. IMIPRAMINE [Concomitant]
     Indication: FEELING COLD
     Dosage: 10 MG, AT BEDTIME
     Route: 065
  12. IMIPRAMINE [Concomitant]
     Indication: TREMOR
  13. IMIPRAMINE [Concomitant]
     Indication: NIGHT SWEATS
  14. CLONAZEPAM [Concomitant]
     Indication: NEURALGIA
     Dosage: 0.5 MG, TID
     Route: 065
  15. GABAPENTIN [Concomitant]
     Indication: NEURALGIA
     Dosage: 300 MG, AT BEDTIME
     Route: 065
  16. GABAPENTIN [Concomitant]
     Indication: NEURALGIA
     Dosage: 100 MG, TID
     Route: 065
  17. GABAPENTIN [Concomitant]
     Dosage: 300 MG, TID
     Route: 065
  18. GABAPENTIN [Concomitant]
     Indication: NEURALGIA
     Dosage: 1800-3600 MG/DAY
     Route: 065
  19. PETHIDINE [Suspect]
     Indication: NEURALGIA
     Dosage: HALF AN AMPOULE AS NEEDED
     Route: 065
  20. DIHYDROXYACETONE PHOSPHATE [Concomitant]
     Indication: NEURALGIA
     Dosage: UNK
     Route: 042
  21. MORPHINE [Concomitant]
     Indication: NEURALGIA
     Dosage: 160MG AT A RATE 0.2ML/H
     Route: 042
  22. SERTRALINE [Concomitant]
     Indication: NEURALGIA
     Dosage: UNK
     Route: 065
  23. TIZANIDINE [Concomitant]
     Indication: NEURALGIA
     Dosage: UNK
     Route: 065
  24. BACLOFEN [Concomitant]
     Indication: NEURALGIA
     Dosage: UNK
     Route: 065

REACTIONS (7)
  - Confusional state [Unknown]
  - Constipation [Unknown]
  - Nausea [Unknown]
  - Hallucination [Unknown]
  - Dizziness [Unknown]
  - Dry mouth [Unknown]
  - Asthenia [Unknown]
